FAERS Safety Report 8310488-1 (Version None)
Quarter: 2012Q2

REPORT INFORMATION
  Report Type: 
  Country: None (occurrence: None)
  Receive Date: 20120425
  Receipt Date: 20120423
  Transmission Date: 20120825
  Serious: No
  Sender: FDA-Public Use
  Company Number: US-PFIZER INC-2012101236

PATIENT
  Sex: Female
  Weight: 74 kg

DRUGS (2)
  1. CHANTIX [Suspect]
     Indication: SMOKING CESSATION THERAPY
     Dosage: 0.5 MG, DAILY
     Route: 048
     Dates: start: 20120416, end: 20120401
  2. CHANTIX [Suspect]
     Dosage: 0.5 MG, 2XDAILY
     Route: 048
     Dates: start: 20120401

REACTIONS (1)
  - NAUSEA [None]
